FAERS Safety Report 7318033-4 (Version None)
Quarter: 2011Q1

REPORT INFORMATION
  Report Type: 
  Country: None (occurrence: None)
  Receive Date: 20110228
  Receipt Date: 20110216
  Transmission Date: 20110831
  Serious: Yes (Other)
  Sender: FDA-Public Use
  Company Number: CA-AMGEN-CANSP2011009410

PATIENT
  Sex: Male
  Weight: 65 kg

DRUGS (1)
  1. ARANESP [Suspect]
     Indication: RENAL FAILURE CHRONIC
     Dosage: 150 A?G, QWK

REACTIONS (2)
  - HAEMOGLOBIN DECREASED [None]
  - ACUTE MYELOID LEUKAEMIA [None]
